FAERS Safety Report 23127970 (Version 11)
Quarter: 2025Q2

REPORT INFORMATION
  Report Type: Report from Study
  Country: CO (occurrence: CO)
  Receive Date: 20231031
  Receipt Date: 20250617
  Transmission Date: 20250716
  Serious: Yes (Hospitalization, Other)
  Sender: TAKEDA
  Company Number: CO-TAKEDA-2023TUS104000

PATIENT
  Age: 60 Year
  Sex: Female
  Weight: 44 kg

DRUGS (1)
  1. VEDOLIZUMAB [Suspect]
     Active Substance: VEDOLIZUMAB
     Indication: Colitis ulcerative
     Dates: start: 20231030, end: 20250130

REACTIONS (24)
  - Diarrhoea haemorrhagic [Unknown]
  - Large intestinal stenosis [Not Recovered/Not Resolved]
  - Colitis ulcerative [Unknown]
  - Haematemesis [Unknown]
  - Diarrhoea [Unknown]
  - Malaise [Unknown]
  - Abdominal pain [Not Recovered/Not Resolved]
  - Asthenia [Unknown]
  - Rectal haemorrhage [Unknown]
  - Inappropriate schedule of product administration [Not Recovered/Not Resolved]
  - Anxiety [Unknown]
  - Depressive symptom [Unknown]
  - Mood altered [Unknown]
  - Insomnia [Unknown]
  - Irritability [Unknown]
  - Infusion site induration [Unknown]
  - Infusion site haematoma [Unknown]
  - Pain [Unknown]
  - Product dispensing issue [Not Recovered/Not Resolved]
  - Drug effect less than expected [Unknown]
  - Chest pain [Unknown]
  - Decreased appetite [Unknown]
  - Vomiting [Unknown]
  - Pain in extremity [Unknown]

NARRATIVE: CASE EVENT DATE: 20231213
